FAERS Safety Report 7009455-X (Version None)
Quarter: 2010Q3

REPORT INFORMATION
  Report Type: 
  Country: None (occurrence: None)
  Receive Date: 20100923
  Receipt Date: 20100920
  Transmission Date: 20110219
  Serious: Yes (Hospitalization)
  Sender: FDA-Public Use
  Company Number: GB-AMGEN-KDC437625

PATIENT
  Sex: Male

DRUGS (18)
  1. VECTIBIX [Suspect]
     Indication: GASTROOESOPHAGEAL CANCER
     Dates: start: 20100727
  2. EPIRUBICIN [Concomitant]
     Dates: start: 20100727
  3. OXALIPLATIN [Concomitant]
     Dates: start: 20100727
  4. CAPECITABINE [Concomitant]
     Dates: start: 20100727
  5. TAMSULOSIN HCL [Concomitant]
  6. SALBUTAMOL [Concomitant]
  7. BECLOMETHASONE DIPROPIONATE [Concomitant]
  8. METOCLOPRAMIDE [Concomitant]
     Dates: start: 20100727
  9. DEXAMETHASONE [Concomitant]
     Dates: start: 20100727
  10. LACTULOSE [Concomitant]
     Dates: start: 20100727
  11. DIPROBASE [Concomitant]
     Route: 061
     Dates: start: 20100727
  12. LANSOPRAZOLE [Concomitant]
     Dates: start: 20100804
  13. CHOLINE SALICYLATE [Concomitant]
     Route: 048
     Dates: start: 20100804
  14. CHLORHEXIDINE GLUCONATE [Concomitant]
     Route: 048
     Dates: start: 20100804
  15. HYDROCORTISONE [Concomitant]
     Route: 061
     Dates: start: 20100813
  16. ANTIBIOTICS [Concomitant]
     Route: 061
     Dates: start: 20100817
  17. ASPIRIN [Concomitant]
     Dates: start: 20100817
  18. ANTIINFLAMMATORY NOS [Concomitant]

REACTIONS (3)
  - COLONIC OBSTRUCTION [None]
  - DIARRHOEA [None]
  - INFECTION [None]
